FAERS Safety Report 19462392 (Version 1)
Quarter: 2021Q2

REPORT INFORMATION
  Report Type: Spontaneous
  Country: GB (occurrence: GB)
  Receive Date: 20210625
  Receipt Date: 20210625
  Transmission Date: 20210717
  Serious: Yes (Other)
  Sender: FDA-Public Use
  Company Number: NVSC2021GB133590

PATIENT
  Age: 36 Year
  Sex: Male
  Weight: 95 kg

DRUGS (1)
  1. OMEPRAZOLE. [Suspect]
     Active Substance: OMEPRAZOLE
     Indication: GASTROOESOPHAGEAL REFLUX DISEASE
     Dosage: 20 MG
     Route: 048
     Dates: start: 20080721, end: 20090721

REACTIONS (4)
  - Kidney fibrosis [Not Recovered/Not Resolved]
  - Renal injury [Unknown]
  - Pruritus [Unknown]
  - Rash [Unknown]

NARRATIVE: CASE EVENT DATE: 20080921
